FAERS Safety Report 14076971 (Version 5)
Quarter: 2019Q1

REPORT INFORMATION
  Report Type: Report from Study
  Country: AT (occurrence: AT)
  Receive Date: 20171011
  Receipt Date: 20190122
  Transmission Date: 20190417
  Serious: Yes (Hospitalization)
  Sender: FDA-Public Use
  Company Number: AT-AMGEN-AUTNI2017153163

PATIENT
  Age: 67 Year
  Sex: Female
  Weight: 62 kg

DRUGS (14)
  1. PANTOPRAZOL [Concomitant]
     Active Substance: PANTOPRAZOLE SODIUM
     Dosage: 40 MG, UNK
     Dates: start: 201703
  2. FAMCICLOVIR. [Concomitant]
     Active Substance: FAMCICLOVIR
     Dosage: 250 MG, UNK
     Dates: start: 2009
  3. BISOPROLOL [Concomitant]
     Active Substance: BISOPROLOL
     Dosage: 2.5 MG, UNK
     Dates: start: 201704
  4. CYCLOPHOSPHAMID [Concomitant]
     Active Substance: CYCLOPHOSPHAMIDE
     Dosage: 483 MG, UNK
     Dates: start: 20170406, end: 20170830
  5. ZOLEDRONIC ACID [Concomitant]
     Active Substance: ZOLEDRONIC ACID
     Dosage: 1 UNK, UNK
     Dates: start: 2009
  6. DEXAMETHASONE. [Concomitant]
     Active Substance: DEXAMETHASONE
     Indication: PLASMA CELL MYELOMA
     Dosage: 40 MG, UNK
     Dates: start: 20170406, end: 20170830
  7. KCL [Concomitant]
     Active Substance: POTASSIUM CHLORIDE
     Dosage: 600 MG, UNK
     Dates: start: 201704
  8. TRITAZIDE [Concomitant]
     Active Substance: HYDROCHLOROTHIAZIDE\RAMIPRIL
     Dosage: 2.5 MG, UNK
     Dates: start: 201704
  9. CARFILZOMIB [Suspect]
     Active Substance: CARFILZOMIB
     Indication: PLASMA CELL MYELOMA
     Dosage: 56.9 MG, UNK
     Route: 042
     Dates: start: 20170406, end: 20170901
  10. MOLAXOLE [Concomitant]
     Active Substance: POLYETHYLENE GLYCOL 3350\POTASSIUM CHLORIDE\SODIUM BICARBONATE\SODIUM CHLORIDE
     Dosage: 1 UNK, UNK
     Dates: start: 20170223
  11. LIDAPRIM [Concomitant]
     Dosage: 1 UNK, UNK
     Dates: start: 201704
  12. XEFO [Concomitant]
     Active Substance: LORNOXICAM
     Dosage: 8 MG, UNK
     Dates: start: 20170223
  13. PASPERTIN [Concomitant]
     Dosage: 1 UNK, UNK
     Dates: start: 20170223
  14. UROSIN [Concomitant]
     Active Substance: ALLOPURINOL
     Dosage: 1 UNK, UNK
     Dates: start: 201703

REACTIONS (1)
  - Cardiac failure [Not Recovered/Not Resolved]

NARRATIVE: CASE EVENT DATE: 20170901
